FAERS Safety Report 18285907 (Version 1)
Quarter: 2020Q3

REPORT INFORMATION
  Report Type: Spontaneous
  Country: AR (occurrence: AR)
  Receive Date: 20200919
  Receipt Date: 20200919
  Transmission Date: 20201103
  Serious: Yes (Other)
  Sender: FDA-Public Use
  Company Number: NVSC2020AR251331

PATIENT
  Sex: Female

DRUGS (1)
  1. EVEROLIMUS. [Suspect]
     Active Substance: EVEROLIMUS
     Indication: PRODUCT USED FOR UNKNOWN INDICATION
     Dosage: UNK
     Route: 065

REACTIONS (7)
  - Haemorrhage [Not Recovered/Not Resolved]
  - Thrombosis [Unknown]
  - Pain [Unknown]
  - Traumatic lung injury [Unknown]
  - Bone lesion [Unknown]
  - Weight abnormal [Unknown]
  - Anaemia [Unknown]

NARRATIVE: CASE EVENT DATE: 2020
